FAERS Safety Report 8131022-5 (Version None)
Quarter: 2012Q1

REPORT INFORMATION
  Report Type: 
  Country: None (occurrence: None)
  Receive Date: 20120208
  Receipt Date: 20120208
  Transmission Date: 20120608
  Serious: Yes (Hospitalization)
  Sender: FDA-Public Use
  Company Number: None

PATIENT
  Sex: Male
  Weight: 103.9 kg

DRUGS (2)
  1. DAUNORUBICIN HCL [Suspect]
     Dates: end: 20111027
  2. CYTARABINE [Suspect]
     Dosage: 41220 MG
     Dates: end: 20111222

REACTIONS (16)
  - PYREXIA [None]
  - STAPHYLOCOCCAL SEPSIS [None]
  - CHOROIDAL EFFUSION [None]
  - MUSCULAR WEAKNESS [None]
  - PAIN [None]
  - THROMBOSIS [None]
  - MASS [None]
  - ABSCESS [None]
  - NEUTROPENIA [None]
  - FEELING HOT [None]
  - ERYTHEMA [None]
  - BLINDNESS UNILATERAL [None]
  - CHILLS [None]
  - PLATELET COUNT DECREASED [None]
  - RETINITIS [None]
  - CHOROIDAL DETACHMENT [None]
